FAERS Safety Report 9255481 (Version 1)
Quarter: 2013Q2

REPORT INFORMATION
  Report Type: Spontaneous
  Country: CH (occurrence: CH)
  Receive Date: 20130425
  Receipt Date: 20130425
  Transmission Date: 20140414
  Serious: Yes (Hospitalization)
  Sender: FDA-Public Use
  Company Number: CH-BAYER-2013-051582

PATIENT
  Age: 90 Year
  Sex: Male

DRUGS (13)
  1. ASPIRIN CARDIO [Suspect]
     Indication: MYOCARDIAL ISCHAEMIA
     Dosage: 100 MG, QD
     Route: 048
  2. MARCOUMAR [Interacting]
     Indication: ATRIAL FIBRILLATION
     Dosage: 1 DF, PRN
     Route: 048
     Dates: end: 20121218
  3. MARCOUMAR [Interacting]
     Indication: ATRIAL FLUTTER
  4. SORTIS [Concomitant]
  5. COVERSUM [Concomitant]
     Route: 048
  6. TOREM [Concomitant]
     Route: 048
  7. LYRICA [Concomitant]
     Route: 048
  8. ACIDUM FOLICUM HAENSELER [Concomitant]
     Route: 048
  9. ALLOPUR [Concomitant]
     Route: 048
  10. PRADIF [Concomitant]
     Route: 048
  11. KEPPRA [Concomitant]
     Route: 048
  12. LAMICTAL [Concomitant]
     Route: 048
  13. ALDACTONE [SPIRONOLACTONE] [Concomitant]
     Dosage: UNK
     Route: 048
     Dates: end: 201212

REACTIONS (5)
  - Gastrointestinal haemorrhage [Recovered/Resolved]
  - Melaena [Recovered/Resolved]
  - Haemorrhagic anaemia [Recovered/Resolved]
  - Prothrombin level increased [Recovered/Resolved]
  - Renal failure [Recovering/Resolving]
